FAERS Safety Report 17510662 (Version 3)
Quarter: 2022Q2

REPORT INFORMATION
  Report Type: Report from Study
  Country: US (occurrence: US)
  Receive Date: 20200306
  Receipt Date: 20220513
  Transmission Date: 20220721
  Serious: No
  Sender: FDA-Public Use
  Company Number: US-HARMONY BIOSCIENCES-2020HMY00081

PATIENT
  Sex: Female
  Weight: 82.54 kg

DRUGS (15)
  1. WAKIX [Suspect]
     Active Substance: PITOLISANT HYDROCHLORIDE
     Indication: Narcolepsy
     Dosage: 8.9 MG, 1X/DAY
     Route: 048
     Dates: start: 20200128, end: 20200203
  2. WAKIX [Suspect]
     Active Substance: PITOLISANT HYDROCHLORIDE
     Indication: Narcolepsy
     Dosage: 17.8 MG, 1X/DAY FOR 7 DAYS
     Route: 048
     Dates: start: 20200204, end: 20200210
  3. WAKIX [Suspect]
     Active Substance: PITOLISANT HYDROCHLORIDE
     Dosage: 35.6 MG, 1X/DAY (MORNING)
     Route: 048
     Dates: start: 20200211
  4. VITAMIN D2 [Concomitant]
     Active Substance: ERGOCALCIFEROL
  5. THREE UNSPECIFIED DROPS FOR GLAUCOMA [Concomitant]
  6. OMEPRAZOLE [Concomitant]
     Active Substance: OMEPRAZOLE
     Dosage: UNK, AS NEEDED
  7. SYMBICORT [Concomitant]
     Active Substance: BUDESONIDE\FORMOTEROL FUMARATE DIHYDRATE
  8. CALCIUM CARBONATE [Concomitant]
     Active Substance: CALCIUM CARBONATE
  9. EUCRISA [Concomitant]
     Active Substance: CRISABOROLE
  10. DUPIXENT [Concomitant]
     Active Substance: DUPILUMAB
  11. ALLOPURINOL [Concomitant]
     Active Substance: ALLOPURINOL
  12. BRIMONIDINE [Concomitant]
     Active Substance: BRIMONIDINE TARTRATE
  13. DORZOLAMIDE [Concomitant]
     Active Substance: DORZOLAMIDE
  14. METOPROLOL [Concomitant]
     Active Substance: METOPROLOL
     Dosage: UNK
     Dates: start: 20200227
  15. VITAMIN B2 [Concomitant]
     Active Substance: RIBOFLAVIN

REACTIONS (1)
  - Therapeutic product effect incomplete [Not Recovered/Not Resolved]

NARRATIVE: CASE EVENT DATE: 20200101
